FAERS Safety Report 8437467-8 (Version None)
Quarter: 2012Q2

REPORT INFORMATION
  Report Type: 
  Country: None (occurrence: None)
  Receive Date: 20120614
  Receipt Date: 20120329
  Transmission Date: 20120825
  Serious: No
  Sender: FDA-Public Use
  Company Number: US-AMGEN-USASP2012020129

PATIENT
  Age: 63 Year
  Sex: Female

DRUGS (6)
  1. ALPRAZOLAM [Concomitant]
     Dosage: UNK
  2. HYZAAR [Concomitant]
     Dosage: UNK
  3. CALCIUM WITH VITAMIN D [Concomitant]
     Dosage: UNK
  4. PROLIA [Suspect]
     Indication: OSTEOPOROSIS POSTMENOPAUSAL
     Dosage: 60 MG, Q6MO
     Dates: start: 20111001
  5. TESTOSTERONE [Concomitant]
     Dosage: UNK
  6. MINOXIDIL [Concomitant]
     Dosage: UNK

REACTIONS (3)
  - C-REACTIVE PROTEIN INCREASED [None]
  - LABORATORY TEST ABNORMAL [None]
  - PALPITATIONS [None]
